FAERS Safety Report 23567052 (Version 2)
Quarter: 2024Q4

REPORT INFORMATION
  Report Type: Report from Study
  Country: US (occurrence: US)
  Receive Date: 20240226
  Receipt Date: 20241127
  Transmission Date: 20250115
  Serious: Yes (Hospitalization, Other)
  Sender: AMNEAL
  Company Number: US-AMNEAL PHARMACEUTICALS-2023-AMRX-04262

PATIENT
  Age: 67 Year
  Sex: Male

DRUGS (1)
  1. CARBIDOPA\LEVODOPA [Suspect]
     Active Substance: CARBIDOPA\LEVODOPA
     Indication: Parkinson^s disease
     Dosage: 02 CAPSULES, 4X/DAY
     Route: 048

REACTIONS (4)
  - Thrombosis [Recovering/Resolving]
  - Peripheral swelling [Recovering/Resolving]
  - Symptom recurrence [Unknown]
  - Product use issue [Unknown]

NARRATIVE: CASE EVENT DATE: 20231125
